FAERS Safety Report 10433670 (Version 6)
Quarter: 2015Q2

REPORT INFORMATION
  Report Type: Report from Study
  Country: DE (occurrence: DE)
  Receive Date: 20140905
  Receipt Date: 20150415
  Transmission Date: 20150821
  Serious: Yes (Death, Hospitalization, Other)
  Sender: FDA-Public Use
  Company Number: PHHY2014DE095031

PATIENT
  Sex: Female
  Weight: 45.5 kg

DRUGS (14)
  1. AFINITOR [Suspect]
     Active Substance: EVEROLIMUS
     Indication: BREAST CANCER METASTATIC
     Dosage: 10 MG, QD (ONCE DAILY)
     Route: 048
     Dates: start: 20130215, end: 20140213
  2. ENALAPRIL [Concomitant]
     Active Substance: ENALAPRIL
     Indication: HYPERTENSION
     Dosage: 5 MG, QD
     Route: 048
     Dates: start: 20110412
  3. ENALAPRIL [Concomitant]
     Active Substance: ENALAPRIL
     Dosage: 10 MG, QD (1-0-0)
     Route: 048
     Dates: start: 20110412, end: 20140803
  4. L-THYROXIN [Concomitant]
     Active Substance: LEVOTHYROXINE SODIUM
     Indication: HYPOTHYROIDISM
     Dosage: 0.075 MG, QD (1-0-0)
     Route: 048
     Dates: start: 2011, end: 20140803
  5. AFINITOR [Suspect]
     Active Substance: EVEROLIMUS
     Dosage: 10 MG, QD (ONCE DAILY)
     Route: 048
     Dates: start: 20140220, end: 20140710
  6. TOREM [Concomitant]
     Active Substance: TORSEMIDE
     Indication: PRODUCT USED FOR UNKNOWN INDICATION
     Dosage: 5 MG, QD
     Route: 065
     Dates: start: 20140217
  7. MUCOSOLVAN [Concomitant]
     Active Substance: AMBROXOL\CLENBUTEROL
     Indication: PRODUCT USED FOR UNKNOWN INDICATION
     Dosage: 4 ML, TID (1-1-1)
     Route: 065
     Dates: start: 20140801
  8. ACTRAPID [Concomitant]
     Active Substance: INSULIN HUMAN
     Indication: PRODUCT USED FOR UNKNOWN INDICATION
     Dosage: 20 IU, UNK
     Route: 065
  9. EXEMESTANE. [Concomitant]
     Active Substance: EXEMESTANE
     Indication: BREAST CANCER METASTATIC
     Dosage: 25 MG, QD (ONCE DAILY)
     Route: 048
     Dates: start: 20130215, end: 20140213
  10. EXEMESTANE. [Concomitant]
     Active Substance: EXEMESTANE
     Dosage: 25 MG, QD
     Route: 048
     Dates: start: 20140220, end: 20140710
  11. NITRENDIPIN [Concomitant]
     Indication: HYPERTENSION
     Dosage: 10 MG, QD (1-0-0)
     Route: 048
     Dates: start: 20110412, end: 20140803
  12. ACTRAPID [Concomitant]
     Active Substance: INSULIN HUMAN
     Dosage: 1000 ML, UNK
     Route: 042
     Dates: start: 20140407
  13. SMOFKABIVEN [Concomitant]
     Active Substance: UNSPECIFIED INGREDIENT
     Indication: PRODUCT USED FOR UNKNOWN INDICATION
     Dosage: 1000 ML, AT NIGHTS
     Route: 042
     Dates: start: 20140407
  14. ZOMETA [Suspect]
     Active Substance: ZOLEDRONIC ACID
     Indication: PRODUCT USED FOR UNKNOWN INDICATION
     Dosage: 1 DF, EVERY 4 WEEKS
     Route: 065
     Dates: start: 20130311

REACTIONS (26)
  - Acute kidney injury [Not Recovered/Not Resolved]
  - Malignant peritoneal neoplasm [Not Recovered/Not Resolved]
  - C-reactive protein increased [Unknown]
  - Cardiac failure [Not Recovered/Not Resolved]
  - Red blood cell count decreased [Unknown]
  - Urinary tract infection [Not Recovered/Not Resolved]
  - Fatigue [Unknown]
  - Pulmonary congestion [Unknown]
  - Toxic dilatation of intestine [Unknown]
  - Pneumonia [Not Recovered/Not Resolved]
  - Ventricular dysfunction [Unknown]
  - Subileus [Not Recovered/Not Resolved]
  - General physical health deterioration [Fatal]
  - Malignant neoplasm progression [Fatal]
  - Pyrexia [Not Recovered/Not Resolved]
  - Vomiting [Unknown]
  - Blood urea increased [Unknown]
  - Ascites [Not Recovered/Not Resolved]
  - Rhonchi [Unknown]
  - Haemoglobin decreased [Unknown]
  - Prothrombin time shortened [Unknown]
  - Dyspnoea [Unknown]
  - Blood creatinine increased [Unknown]
  - Normochromic normocytic anaemia [Recovering/Resolving]
  - Haematocrit decreased [Unknown]
  - Nausea [Unknown]

NARRATIVE: CASE EVENT DATE: 20140407
